FAERS Safety Report 14234282 (Version 1)
Quarter: 2017Q4

REPORT INFORMATION
  Report Type: Spontaneous
  Country: US (occurrence: US)
  Receive Date: 20171129
  Receipt Date: 20171129
  Transmission Date: 20180321
  Serious: No
  Sender: FDA-Public Use
  Company Number: US-JNJFOC-20171002598

PATIENT
  Age: 86 Year
  Sex: Male
  Weight: 47.63 kg

DRUGS (5)
  1. BIFIDOBACTERIUM NOS [Concomitant]
     Indication: CONSTIPATION
     Route: 065
  2. PROSCAR [Concomitant]
     Active Substance: FINASTERIDE
     Indication: PROSTATIC DISORDER
     Route: 065
  3. TYLENOL ARTHRITIS PAIN [Suspect]
     Active Substance: ACETAMINOPHEN
     Indication: ANKYLOSING SPONDYLITIS
     Dosage: NIGHTLY, USED FOR A COUPLE OF YEARS
     Route: 048
  4. TYLENOL ARTHRITIS PAIN [Suspect]
     Active Substance: ACETAMINOPHEN
     Route: 048
  5. AREDS [Concomitant]
     Active Substance: MINERALS\VITAMINS
     Indication: EYE DISORDER
     Route: 065

REACTIONS (2)
  - Incorrect dose administered [Unknown]
  - Myalgia [Unknown]
